FAERS Safety Report 6182567-9 (Version None)
Quarter: 2009Q2

REPORT INFORMATION
  Report Type: 
  Country: None (occurrence: None)
  Receive Date: 20090507
  Receipt Date: 20090425
  Transmission Date: 20091009
  Serious: Yes (Hospitalization, Other)
  Sender: FDA-Public Use
  Company Number: US-PFIZER INC-2009187799

PATIENT
  Sex: Male
  Weight: 85 kg

DRUGS (30)
  1. BLINDED *PLACEBO [Suspect]
     Indication: PULMONARY HYPERTENSION
     Dosage: UNK
     Dates: start: 20090129, end: 20090312
  2. BLINDED SILDENAFIL CITRATE [Suspect]
     Indication: PULMONARY HYPERTENSION
     Dosage: UNK
     Dates: start: 20090129, end: 20090312
  3. ACETYLSALICYLIC ACID [Concomitant]
     Indication: ROUTINE HEALTH MAINTENANCE
     Dosage: UNK
     Dates: start: 20000101
  4. CALCIUM W/MAGNESIUM [Concomitant]
     Dosage: UNK
     Dates: start: 19880101
  5. VITAMIN D [Concomitant]
     Dosage: UNK
     Dates: start: 19880101
  6. CHERATUSSIN [Concomitant]
     Indication: COUGH
     Dosage: UNK
     Dates: start: 20081003
  7. DESIPRAMINE [Concomitant]
     Indication: DEPRESSION
     Dosage: UNK
     Dates: start: 19750101
  8. DILTIAZEM HYDROCHLORIDE [Concomitant]
     Indication: HYPERTENSION
     Dosage: UNK
     Dates: start: 20080114
  9. NASAL SALINE [Concomitant]
     Indication: NASAL CONGESTION
     Dosage: UNK
     Dates: start: 20000101
  10. TAMSULOSIN HYDROCHLORIDE [Concomitant]
     Indication: BENIGN PROSTATIC HYPERPLASIA
     Dosage: UNK
     Dates: start: 20051204
  11. FUROSEMIDE [Concomitant]
     Indication: HYPERTENSION
     Dosage: UNK
     Dates: start: 20010101
  12. LECITHIN [Concomitant]
     Indication: ROUTINE HEALTH MAINTENANCE
     Dosage: UNK
     Dates: start: 19880101
  13. MILK OF MAGNESIA TAB [Concomitant]
     Indication: CONSTIPATION
     Dosage: UNK
     Dates: start: 20070101
  14. MUCINEX [Concomitant]
     Indication: COUGH
     Dosage: UNK
     Dates: start: 20080120
  15. MULTI-VITAMINS [Concomitant]
     Indication: ROUTINE HEALTH MAINTENANCE
     Dosage: UNK
     Dates: start: 20080101
  16. POTASSIUM CHLORIDE [Concomitant]
     Indication: HYPERTENSION
     Dosage: UNK
     Dates: start: 20010401
  17. SALBUTAMOL [Concomitant]
     Indication: COUGH
     Dosage: UNK
     Dates: start: 20081201
  18. TYLENOL [Concomitant]
     Indication: HEADACHE
     Dosage: UNK
     Dates: start: 20000101
  19. ASCORBIC ACID [Concomitant]
     Indication: ROUTINE HEALTH MAINTENANCE
     Dosage: UNK
     Dates: start: 19880101
  20. VITAMIN B COMPLEX CAP [Concomitant]
     Indication: ROUTINE HEALTH MAINTENANCE
     Dosage: UNK
     Dates: start: 19880101
  21. ADVAIR HFA [Concomitant]
     Indication: COUGH
     Dosage: UNK
     Dates: start: 20090101
  22. AZITHROMYCIN [Concomitant]
     Indication: PROPHYLAXIS
     Dosage: UNK
     Dates: start: 20090101
  23. AZITHROMYCIN [Concomitant]
     Indication: RESPIRATORY TRACT INFECTION
  24. NASACORT [Concomitant]
     Indication: NASAL CONGESTION
     Dosage: UNK
     Dates: start: 20090205
  25. OMEPRAZOLE [Concomitant]
     Indication: DYSPEPSIA
     Dosage: 40 MG, 1X/DAY
     Dates: start: 20080118
  26. OMEPRAZOLE [Concomitant]
     Indication: HIATUS HERNIA
  27. OMEPRAZOLE [Concomitant]
     Indication: BARRETT'S OESOPHAGUS
  28. RANITIDINE HYDROCHLORIDE [Concomitant]
     Indication: PULMONARY FIBROSIS
     Dosage: UNK
     Dates: start: 20080118
  29. RANITIDINE HYDROCHLORIDE [Concomitant]
     Indication: DYSPEPSIA
  30. RANITIDINE HYDROCHLORIDE [Concomitant]
     Indication: BARRETT'S OESOPHAGUS

REACTIONS (1)
  - ATRIAL FIBRILLATION [None]
